FAERS Safety Report 5578029-X (Version None)
Quarter: 2007Q4

REPORT INFORMATION
  Report Type: 
  Country: None (occurrence: None)
  Receive Date: 20071231
  Receipt Date: 20071227
  Transmission Date: 20080405
  Serious: Yes (Life-Threatening, Hospitalization, Other)
  Sender: FDA-Public Use
  Company Number: DE-AVENTIS-200410392DE

PATIENT
  Age: 60 Year
  Sex: Female
  Weight: 80 kg

DRUGS (7)
  1. ARAVA [Suspect]
     Route: 048
  2. LASIX [Concomitant]
     Route: 048
  3. SANDIMMUNE [Concomitant]
     Indication: IMMUNOSUPPRESSION
     Route: 048
  4. SANDIMMUNE [Concomitant]
     Route: 048
  5. BELOC                              /00376903/ [Concomitant]
     Indication: HYPERTENSION
     Route: 048
  6. ALLOPURINOL [Concomitant]
     Route: 048
  7. SODIUM-BICARBONAT [Concomitant]
     Dosage: DOSE: 2-2-2
     Route: 048

REACTIONS (4)
  - ARTHRALGIA [None]
  - ASTHENIA [None]
  - HEPATIC ENZYME INCREASED [None]
  - HEPATIC FAILURE [None]
